FAERS Safety Report 25392218 (Version 2)
Quarter: 2025Q2

REPORT INFORMATION
  Report Type: Spontaneous
  Country: SE (occurrence: SE)
  Receive Date: 20250603
  Receipt Date: 20250611
  Transmission Date: 20250716
  Serious: Yes (Other)
  Sender: REGENERON
  Company Number: None

PATIENT
  Age: 83 Year
  Sex: Male

DRUGS (1)
  1. LIBTAYO [Suspect]
     Active Substance: CEMIPLIMAB-RWLC
     Indication: Lung neoplasm malignant
     Dosage: EVERY THREE WEEKS. DOSE: 15
     Route: 042
     Dates: start: 20240605

REACTIONS (3)
  - Hepatitis acute [Not Recovered/Not Resolved]
  - Abdominal pain [Recovered/Resolved]
  - Pyrexia [Not Recovered/Not Resolved]

NARRATIVE: CASE EVENT DATE: 20250512
